FAERS Safety Report 15484636 (Version 2)
Quarter: 2018Q4

REPORT INFORMATION
  Report Type: Spontaneous
  Country: US (occurrence: US)
  Receive Date: 20181010
  Receipt Date: 20181115
  Transmission Date: 20190205
  Serious: No
  Sender: FDA-Public Use
  Company Number: US-B.I. PHARMACEUTICALS,INC./RIDGEFIELD-2018-BI-049147

PATIENT
  Age: 80 Year
  Sex: Male

DRUGS (2)
  1. QVAR [Concomitant]
     Active Substance: BECLOMETHASONE DIPROPIONATE
     Indication: ASTHMA
     Dosage: TWO PUFFS TWICE A DAY;
     Route: 055
  2. COMBIVENT [Suspect]
     Active Substance: ALBUTEROL SULFATE\IPRATROPIUM BROMIDE
     Indication: ASTHMA
     Dosage: ONE SPRAY AS NEEDED;  FORM STRENGTH: 20 MCG / 100 MCG; ? YES ?ACTION TAKEN DOSE NOT CHANGED
     Route: 055

REACTIONS (4)
  - Product quality issue [Unknown]
  - Off label use [Unknown]
  - Visual impairment [Unknown]
  - Blister [Not Recovered/Not Resolved]

NARRATIVE: CASE EVENT DATE: 201809
